FAERS Safety Report 10853175 (Version 1)
Quarter: 2015Q1

REPORT INFORMATION
  Report Type: Report from Study
  Country: CN (occurrence: CN)
  Receive Date: 20150223
  Receipt Date: 20150223
  Transmission Date: 20150721
  Serious: Yes (Other)
  Sender: FDA-Public Use
  Company Number: CN-ASTRAZENECA-2015SE15157

PATIENT
  Sex: Female

DRUGS (1)
  1. BYETTA [Suspect]
     Active Substance: EXENATIDE
     Indication: INSULIN RESISTANCE
     Route: 058
     Dates: start: 20141031

REACTIONS (4)
  - Shock [Recovered/Resolved]
  - Drug hypersensitivity [Recovered/Resolved]
  - Abdominal pain upper [Recovered/Resolved]
  - Acne [Unknown]

NARRATIVE: CASE EVENT DATE: 201411
